FAERS Safety Report 21612772 (Version 1)
Quarter: 2022Q4

REPORT INFORMATION
  Report Type: Spontaneous
  Country: DE (occurrence: DE)
  Receive Date: 20221118
  Receipt Date: 20221118
  Transmission Date: 20230113
  Serious: Yes (Other)
  Sender: FDA-Public Use
  Company Number: DE-002147023-NVSC2022DE255000

PATIENT
  Age: 79 Year
  Sex: Female

DRUGS (5)
  1. LUCENTIS [Suspect]
     Active Substance: RANIBIZUMAB
     Indication: Product used for unknown indication
     Dosage: UNK, (INITIALLY IN BOTH EYES) 10 MILLIGRAM PER MILLILITRE
     Route: 050
     Dates: start: 2013
  2. LUCENTIS [Suspect]
     Active Substance: RANIBIZUMAB
     Dosage: UNK, (INJECTION IN LEFT EYE)
     Route: 050
     Dates: start: 20221107
  3. LUCENTIS [Suspect]
     Active Substance: RANIBIZUMAB
     Dosage: UNK, (INJECTION IN LEFT EYE), Q4W
     Route: 050
  4. LUCENTIS [Suspect]
     Active Substance: RANIBIZUMAB
     Dosage: UNK, (INJECTION IN RIGHT EYE), Q4W
     Route: 050
  5. LEVOTHYROXINE [Concomitant]
     Active Substance: LEVOTHYROXINE
     Indication: Product used for unknown indication
     Dosage: UNK

REACTIONS (12)
  - Dry age-related macular degeneration [Unknown]
  - Disease progression [Unknown]
  - Blindness [Unknown]
  - Scleral disorder [Not Recovered/Not Resolved]
  - Oropharyngeal pain [Unknown]
  - Dizziness [Unknown]
  - Sleep disorder [Unknown]
  - Pain in extremity [Unknown]
  - Myalgia [Unknown]
  - Depression [Unknown]
  - Visual impairment [Not Recovered/Not Resolved]
  - Headache [Unknown]

NARRATIVE: CASE EVENT DATE: 20220101
